FAERS Safety Report 7020888-8 (Version None)
Quarter: 2010Q3

REPORT INFORMATION
  Report Type: 
  Country: None (occurrence: None)
  Receive Date: 20100929
  Receipt Date: 20100921
  Transmission Date: 20110219
  Serious: Yes (Hospitalization)
  Sender: FDA-Public Use
  Company Number: US-PURDUE-USA-2010-0047213

PATIENT
  Sex: Male

DRUGS (8)
  1. OXYCONTIN [Suspect]
     Indication: NEURALGIA
     Dosage: 40 MG, BID
     Dates: start: 20100913
  2. TRAMADOL HCL [Concomitant]
     Indication: PRODUCT USED FOR UNKNOWN INDICATION
     Dosage: 50 MG, TID
  3. TIZANIDINE HCL [Concomitant]
     Indication: BACK PAIN
     Dosage: 4 MG, TID
  4. TIZANIDINE HCL [Concomitant]
     Indication: MYALGIA
  5. OXAZEPAM [Concomitant]
     Indication: ANXIETY
     Dosage: 30 MG, TID
  6. OXAZEPAM [Concomitant]
     Indication: RELAXATION THERAPY
  7. LOPRIL                             /00498401/ [Concomitant]
     Indication: HYPERTENSION
     Dosage: 25 MG, DAILY
  8. ASPIRIN [Concomitant]
     Indication: PROPHYLAXIS
     Dosage: 81 MG, DAILY

REACTIONS (5)
  - CEREBROVASCULAR ACCIDENT [None]
  - DRUG EFFECT DELAYED [None]
  - DRUG EFFECT INCREASED [None]
  - FEELING ABNORMAL [None]
  - MUSCLE SPASMS [None]
